FAERS Safety Report 9105491 (Version 1)
Quarter: 2013Q1

REPORT INFORMATION
  Report Type: Spontaneous
  Country: US (occurrence: US)
  Receive Date: 20130221
  Receipt Date: 20130221
  Transmission Date: 20140127
  Serious: No
  Sender: FDA-Public Use
  Company Number: US-TEVA-339687USA

PATIENT
  Age: 77 Year
  Sex: Female

DRUGS (4)
  1. TREANDA [Suspect]
     Indication: CHRONIC LYMPHOCYTIC LEUKAEMIA
     Route: 042
     Dates: start: 2012
  2. ALENDRONATE SODIUM [Concomitant]
  3. ALLOPURINOL [Concomitant]
  4. ANTIHYPERTENSIVES [Concomitant]

REACTIONS (2)
  - Rash [Recovered/Resolved]
  - Renal impairment [Recovered/Resolved]
